FAERS Safety Report 6911862-8 (Version None)
Quarter: 2010Q3

REPORT INFORMATION
  Report Type: 
  Country: None (occurrence: None)
  Receive Date: 20100806
  Receipt Date: 20070726
  Transmission Date: 20110219
  Serious: No
  Sender: FDA-Public Use
  Company Number: US-PFIZER INC-2007061705

PATIENT
  Sex: Female

DRUGS (4)
  1. GLUCOTROL XL [Suspect]
  2. HUMALOG [Suspect]
  3. NOVOLIN 70/30 [Suspect]
  4. LANTUS [Suspect]

REACTIONS (1)
  - DIABETES MELLITUS INADEQUATE CONTROL [None]
